FAERS Safety Report 9419659 (Version 4)
Quarter: 2013Q3

REPORT INFORMATION
  Report Type: Spontaneous
  Country: GB (occurrence: GB)
  Receive Date: 20130725
  Receipt Date: 20130920
  Transmission Date: 20140515
  Serious: Yes (Life-Threatening, Hospitalization, Other)
  Sender: FDA-Public Use
  Company Number: PHFR2013GB003435

PATIENT
  Age: 43 Year
  Sex: Female

DRUGS (7)
  1. CLOZARIL [Suspect]
     Indication: SCHIZOPHRENIA
     Dosage: UNK
     Route: 048
     Dates: start: 20130517
  2. ATENOLOL [Concomitant]
     Dosage: UNK
  3. HYOSCINE HYDROBROMIDE [Concomitant]
     Dosage: UNK
  4. LISINOPRIL [Concomitant]
     Dosage: 10 MG
  5. METFORMIN [Concomitant]
     Dosage: 500 MG
  6. CITALOPRAM [Concomitant]
     Dosage: 20 MG
  7. VALPROIC ACID [Concomitant]
     Dosage: UNK

REACTIONS (16)
  - Cardiogenic shock [Recovered/Resolved]
  - Dizziness [Unknown]
  - Hypotension [Unknown]
  - Cardiomyopathy [Recovered/Resolved]
  - Congestive cardiomyopathy [Unknown]
  - Chest discomfort [Unknown]
  - Left ventricular dysfunction [Recovered/Resolved]
  - Renal impairment [Unknown]
  - Vaginal haemorrhage [Unknown]
  - Staphylococcus test positive [Unknown]
  - Hepatic steatosis [Unknown]
  - Myocardial infarction [Unknown]
  - Pyrexia [Recovered/Resolved]
  - Sepsis [Unknown]
  - Neutrophil count increased [Unknown]
  - Eosinophil count increased [Unknown]
